FAERS Safety Report 8983039 (Version 1)
Quarter: 2012Q4

REPORT INFORMATION
  Report Type: 
  Country: US (occurrence: US)
  Receive Date: 20121224
  Receipt Date: 20121224
  Transmission Date: 20130627
  Serious: No
  Sender: FDA-Public Use
  Company Number: US-BAYER-2012-134445

PATIENT
  Age: 66 Year
  Sex: Male
  Weight: 97.96 kg

DRUGS (4)
  1. ALEVE CAPLET/TABLET,MIDOL EXTENDED RELIEF CAPLET [Suspect]
     Indication: ARTHRITIS
     Dosage: 2 DF, UNK
     Route: 048
     Dates: start: 1994
  2. ALEVE CAPLET/TABLET,MIDOL EXTENDED RELIEF CAPLET [Suspect]
     Indication: ARTHRITIS
     Dosage: 4 DF, a day
     Dates: start: 1994
  3. SEIZURE MEDICATION [Concomitant]
  4. VITAMINS [Concomitant]

REACTIONS (3)
  - Incorrect drug administration duration [None]
  - Overdose [None]
  - Therapeutic response unexpected [None]
